FAERS Safety Report 26093698 (Version 1)
Quarter: 2025Q4

REPORT INFORMATION
  Report Type: Spontaneous
  Country: CN (occurrence: CN)
  Receive Date: 20251126
  Receipt Date: 20251126
  Transmission Date: 20260118
  Serious: Yes (Other)
  Sender: GUERBET
  Company Number: None

PATIENT
  Age: 39 Year
  Sex: Male
  Weight: 96 kg

DRUGS (2)
  1. OPTIRAY 350 [Suspect]
     Active Substance: IOVERSOL
     Indication: Urogram
     Dosage: MIXED WITH 0.9% SODIUM CHLORIDE SOLUTION 30ML AT A RATE OF 3.0ML/S
     Route: 042
     Dates: start: 20250802, end: 20250802
  2. 0.9% sodium chloride solution [Concomitant]
     Indication: Urogram
     Route: 042
     Dates: start: 20250802, end: 20250802

REACTIONS (4)
  - Urticaria [Recovering/Resolving]
  - Rash [Recovering/Resolving]
  - Pruritus [Recovering/Resolving]
  - Discomfort [Recovering/Resolving]

NARRATIVE: CASE EVENT DATE: 20250802
